FAERS Safety Report 4675991-4 (Version None)
Quarter: 2005Q2

REPORT INFORMATION
  Report Type: 
  Country: None (occurrence: None)
  Receive Date: 20050527
  Receipt Date: 20050315
  Transmission Date: 20051028
  Serious: No
  Sender: FDA-Public Use
  Company Number: US-GLAXOSMITHKLINE-A0549836A

PATIENT
  Age: 63 Year
  Sex: Male

DRUGS (11)
  1. WELLBUTRIN XL [Suspect]
     Indication: DEPRESSION
     Dosage: 300MG PER DAY
     Route: 048
     Dates: start: 20050208
  2. AMIODARONE [Concomitant]
  3. ASPIRIN [Concomitant]
  4. TENORMIN [Concomitant]
  5. LIPITOR [Concomitant]
  6. COUMADIN [Concomitant]
  7. NORVASC [Concomitant]
  8. DIOVAN HCT [Concomitant]
  9. TYLENOL (CAPLET) [Concomitant]
  10. CITRUCEL [Concomitant]
  11. DULCOLAX [Concomitant]

REACTIONS (5)
  - FEELING JITTERY [None]
  - HYPERHIDROSIS [None]
  - INSOMNIA [None]
  - NERVOUSNESS [None]
  - RESTLESSNESS [None]
